FAERS Safety Report 25892356 (Version 2)
Quarter: 2025Q4

REPORT INFORMATION
  Report Type: Report from Study
  Country: US (occurrence: US)
  Receive Date: 20251007
  Receipt Date: 20251231
  Transmission Date: 20260118
  Serious: Yes (Hospitalization)
  Sender: JOHNSON AND JOHNSON
  Company Number: US-JNJFOC-20250948656

PATIENT
  Age: 3 Decade

DRUGS (1)
  1. TREMFYA [Suspect]
     Active Substance: GUSELKUMAB
     Indication: Product used for unknown indication

REACTIONS (1)
  - Hepatic enzyme increased [Not Recovered/Not Resolved]
